FAERS Safety Report 25889818 (Version 1)
Quarter: 2025Q4

REPORT INFORMATION
  Report Type: Report from Study
  Country: US (occurrence: US)
  Receive Date: 20251007
  Receipt Date: 20251007
  Transmission Date: 20260117
  Serious: Yes (Hospitalization, Other)
  Sender: PFIZER
  Company Number: US-PFIZER INC-PV202500117155

PATIENT
  Age: 64 Year
  Sex: Female
  Weight: 133.6 kg

DRUGS (48)
  1. SOLU-MEDROL [Suspect]
     Active Substance: METHYLPREDNISOLONE SODIUM SUCCINATE
     Dosage: 60 MG, EVERY 8 HOURS
     Route: 042
  2. DUPILUMAB [Concomitant]
     Active Substance: DUPILUMAB
     Indication: Chronic obstructive pulmonary disease
     Dosage: 200 MG/1.14 ML (200 MG EVERY OTHER WEEK)
     Route: 058
     Dates: end: 2025
  3. ALDACTONE [Concomitant]
     Active Substance: SPIRONOLACTONE
     Dosage: 25 MG PER ORAL DAILY ON 6/4
     Route: 048
  4. LANTUS SOLOSTAR [Concomitant]
     Active Substance: INSULIN GLARGINE
     Dosage: UNK
  5. GVOKE [Concomitant]
     Active Substance: GLUCAGON
     Indication: Hypoglycaemia
     Dosage: UNK
  6. FERROUS SULFATE [Concomitant]
     Active Substance: FERROUS SULFATE
     Dosage: UNK
  7. DEXAMETHASONE [Concomitant]
     Active Substance: DEXAMETHASONE
     Dosage: 4 MG X 1
     Route: 042
  8. MAGNESIUM SULFATE [Concomitant]
     Active Substance: MAGNESIUM SULFATE
     Dosage: 2 G X 1
     Route: 042
  9. BUMEX [Concomitant]
     Active Substance: BUMETANIDE
     Dosage: 1 MG X 1
     Route: 042
  10. TOPROL XL [Concomitant]
     Active Substance: METOPROLOL SUCCINATE
     Dosage: UNK
  11. FLUTICASONE FUROATE [Concomitant]
     Active Substance: FLUTICASONE FUROATE
     Dosage: UNK
  12. UMECLIDINIUM BROMIDE [Concomitant]
     Active Substance: UMECLIDINIUM BROMIDE
     Dosage: UNK
  13. TRELEGY ELLIPTA [Concomitant]
     Active Substance: FLUTICASONE FUROATE\UMECLIDINIUM BROMIDE\VILANTEROL TRIFENATATE
     Dosage: UNK
  14. ZINC GLUCONATE [Concomitant]
     Active Substance: ZINC GLUCONATE
     Dosage: UNK
  15. NICODERM CQ [Concomitant]
     Active Substance: NICOTINE
     Dosage: UNK
  16. JARDIANCE [Concomitant]
     Active Substance: EMPAGLIFLOZIN
     Dosage: UNK
  17. ALBUTEROL SULFATE\IPRATROPIUM BROMIDE [Concomitant]
     Active Substance: ALBUTEROL SULFATE\IPRATROPIUM BROMIDE
     Indication: Chronic obstructive pulmonary disease
     Dosage: UNK
  18. MAGNESIUM OXIDE [Concomitant]
     Active Substance: MAGNESIUM OXIDE
     Dosage: UNK
  19. LISINOPRIL [Concomitant]
     Active Substance: LISINOPRIL
     Dosage: UNK
  20. VOLTAREN [Concomitant]
     Active Substance: DICLOFENAC SODIUM
     Indication: Arthritis
     Dosage: UNK
  21. VITAMIN C [Concomitant]
     Active Substance: ASCORBIC ACID
     Dosage: UNK
  22. MUCINEX [Concomitant]
     Active Substance: GUAIFENESIN
     Dosage: UNK
  23. CEFTIN [Concomitant]
     Active Substance: CEFUROXIME AXETIL
     Dosage: 500 MG, 2X/DAY ON 6/4
     Route: 048
  24. ZITHROMAX [Concomitant]
     Active Substance: AZITHROMYCIN DIHYDRATE
     Dosage: 500 MG, DAILY (3-DAY COURSE)
     Route: 048
  25. GABAPENTIN [Concomitant]
     Active Substance: GABAPENTIN
     Dosage: UNK
  26. CRESTOR [Concomitant]
     Active Substance: ROSUVASTATIN CALCIUM
     Dosage: UNK
  27. CYANOCOBALAMIN [Concomitant]
     Active Substance: CYANOCOBALAMIN
     Dosage: UNK
  28. WELLBUTRIN XL [Concomitant]
     Active Substance: BUPROPION HYDROCHLORIDE
     Dosage: UNK
  29. VENTOLIN HFA [Concomitant]
     Active Substance: ALBUTEROL SULFATE
     Indication: Wheezing
     Dosage: UNK
  30. VENTOLIN HFA [Concomitant]
     Active Substance: ALBUTEROL SULFATE
     Indication: Cough
  31. VENTOLIN HFA [Concomitant]
     Active Substance: ALBUTEROL SULFATE
     Indication: Dyspnoea
  32. CHOLECALCIFEROL [Concomitant]
     Active Substance: CHOLECALCIFEROL
     Dosage: UNK
  33. NITROSTAT [Concomitant]
     Active Substance: NITROGLYCERIN
     Indication: Chest pain
     Dosage: UNK
  34. SODIUM CHLORIDE [Concomitant]
     Active Substance: SODIUM CHLORIDE
     Indication: Nasal dryness
     Dosage: UNK
  35. DIGESTIVE ADVANTAGE PROBIOTIC PLUS FIBER [Concomitant]
     Dosage: UNK
  36. HUMALOG KWIKPEN [Concomitant]
     Active Substance: INSULIN LISPRO
     Dosage: UNK
  37. PROTONIX [Concomitant]
     Active Substance: PANTOPRAZOLE SODIUM
     Dosage: UNK
  38. BACILLUS NOS [Concomitant]
     Dosage: UNK
  39. CELLULASE [Concomitant]
     Active Substance: CELLULASE
  40. HEMICELLULASE [Concomitant]
     Dosage: UNK
  41. NOVOLOG [Concomitant]
     Active Substance: INSULIN ASPART
     Dosage: UNK
  42. ROCEPHIN [Concomitant]
     Active Substance: CEFTRIAXONE SODIUM
     Dosage: 1 G, DAILY
     Route: 042
  43. PULMICORT TURBUHALER [Concomitant]
     Active Substance: BUDESONIDE
     Dosage: 2X/DAY
  44. NITROGLYCERIN [Concomitant]
     Active Substance: NITROGLYCERIN
     Dosage: UNK
  45. DUONEB [Concomitant]
     Active Substance: ALBUTEROL SULFATE\IPRATROPIUM BROMIDE
     Indication: Dyspnoea
     Dosage: EVERY 4 AND AS NEEDED
  46. DUONEB [Concomitant]
     Active Substance: ALBUTEROL SULFATE\IPRATROPIUM BROMIDE
     Indication: Wheezing
  47. ALBUTEROL [Concomitant]
     Active Substance: ALBUTEROL
     Dosage: 3 NEB TREATMENT
  48. PREDNISONE [Concomitant]
     Active Substance: PREDNISONE
     Dosage: 40 MG, DAILY
     Route: 048

REACTIONS (33)
  - Pneumonia [Unknown]
  - Cardiac failure congestive [Unknown]
  - Pulmonary oedema [Unknown]
  - Oedema peripheral [Recovered/Resolved]
  - Pyrexia [Unknown]
  - Renal impairment [Unknown]
  - Pulmonary hypertension [Unknown]
  - Pneumonitis [Unknown]
  - Pulmonary congestion [Unknown]
  - Herpes zoster [Unknown]
  - Blood glucose fluctuation [Unknown]
  - Nicotine dependence [Unknown]
  - Heart rate irregular [Unknown]
  - Dyspnoea [Unknown]
  - Chills [Unknown]
  - Cough [Unknown]
  - Chest discomfort [Unknown]
  - Chest pain [Unknown]
  - Blood glucose increased [Unknown]
  - Ventricular dysfunction [Unknown]
  - Left atrial enlargement [Unknown]
  - Weight decreased [Unknown]
  - Atrial pressure increased [Unknown]
  - Pulmonary mass [Unknown]
  - Wheezing [Unknown]
  - Blood alkaline phosphatase increased [Unknown]
  - Blood chloride decreased [Unknown]
  - Blood sodium decreased [Unknown]
  - Blood urea increased [Unknown]
  - Haematocrit decreased [Unknown]
  - Lymphocyte count decreased [Unknown]
  - Neutrophil count increased [Unknown]
  - Red cell distribution width increased [Unknown]

NARRATIVE: CASE EVENT DATE: 20250101
